FAERS Safety Report 8133829-7 (Version None)
Quarter: 2012Q1

REPORT INFORMATION
  Report Type: 
  Country: None (occurrence: None)
  Receive Date: 20120213
  Receipt Date: 20120213
  Transmission Date: 20120608
  Serious: No
  Sender: FDA-Public Use
  Company Number: None

PATIENT
  Age: 48 Year
  Sex: Male
  Weight: 83.007 kg

DRUGS (3)
  1. PERPHENAZINE [Suspect]
     Indication: DEPRESSION
     Dosage: 8MG
     Route: 048
     Dates: start: 20100301, end: 20110701
  2. PERPHENAZINE [Suspect]
     Indication: ANXIETY
     Dosage: 8MG
     Route: 048
     Dates: start: 20100301, end: 20110701
  3. PERPHENAZINE [Suspect]
     Indication: THINKING ABNORMAL
     Dosage: 8MG
     Route: 048
     Dates: start: 20100301, end: 20110701

REACTIONS (1)
  - TARDIVE DYSKINESIA [None]
